FAERS Safety Report 17944538 (Version 1)
Quarter: 2020Q2

REPORT INFORMATION
  Report Type: Spontaneous
  Country: US (occurrence: US)
  Receive Date: 20200625
  Receipt Date: 20200625
  Transmission Date: 20200714
  Serious: Yes (Death, Other)
  Sender: FDA-Public Use
  Company Number: US-ENDO PHARMACEUTICALS INC-2020-004388

PATIENT
  Age: 36 Year

DRUGS (1)
  1. AMITRIPTYLINE HYDROCHLORIDE. [Suspect]
     Active Substance: AMITRIPTYLINE HYDROCHLORIDE
     Indication: PRODUCT USED FOR UNKNOWN INDICATION
     Dosage: UNK UNKNOWN, UNKNOWN
     Route: 048

REACTIONS (6)
  - Coma [Unknown]
  - Pupillary reflex impaired [Unknown]
  - Death [Fatal]
  - Pulseless electrical activity [Unknown]
  - Cardiac arrest [Unknown]
  - Mydriasis [Unknown]

NARRATIVE: CASE EVENT DATE: 201507
